FAERS Safety Report 9392296 (Version 2)
Quarter: 2014Q2

REPORT INFORMATION
  Report Type: Spontaneous
  Country: US (occurrence: US)
  Receive Date: 20130710
  Receipt Date: 20140609
  Transmission Date: 20141212
  Serious: No
  Sender: FDA-Public Use
  Company Number: US-B.I. PHARMACEUTICALS,INC./RIDGEFIELD-2013-BI-19649BP

PATIENT
  Age: 60 Year
  Sex: Male
  Weight: 111 kg

DRUGS (3)
  1. COMBIVENT [Suspect]
     Indication: CHRONIC OBSTRUCTIVE PULMONARY DISEASE
     Dosage: STRENGTH: 20 MCG / 100 MCG; DAILY DOSE: 80 MCG / 400 MCG
     Route: 055
     Dates: start: 20130604
  2. MORPHINE [Concomitant]
     Indication: BACK PAIN
     Dosage: 240 MG
     Route: 048
     Dates: start: 2003
  3. OXYCONTIN [Concomitant]
     Indication: BACK PAIN
     Dosage: 120 MG
     Route: 048
     Dates: start: 2003

REACTIONS (2)
  - Dyspnoea [Not Recovered/Not Resolved]
  - Product quality issue [Recovered/Resolved]
